FAERS Safety Report 16054764 (Version 1)
Quarter: 2019Q1

REPORT INFORMATION
  Report Type: Spontaneous
  Country: US (occurrence: US)
  Receive Date: 20190309
  Receipt Date: 20190309
  Transmission Date: 20190418
  Serious: No
  Sender: FDA-Public Use
  Company Number: PHEH2019US009679

PATIENT
  Sex: Female
  Weight: 99.79 kg

DRUGS (1)
  1. ZOFRAN [Suspect]
     Active Substance: ONDANSETRON HYDROCHLORIDE
     Indication: NAUSEA
     Route: 065

REACTIONS (4)
  - Pruritus [Unknown]
  - Nausea [Unknown]
  - Tremor [Unknown]
  - Dyskinesia [Unknown]
